FAERS Safety Report 9198869 (Version 1)
Quarter: 2013Q1

REPORT INFORMATION
  Report Type: Spontaneous
  Country: GB (occurrence: GB)
  Receive Date: 20130329
  Receipt Date: 20130329
  Transmission Date: 20140127
  Serious: Yes (Other)
  Sender: FDA-Public Use
  Company Number: GB-009507513-1303GBR012956

PATIENT
  Sex: Female

DRUGS (3)
  1. JANUVIA [Suspect]
     Indication: TYPE 2 DIABETES MELLITUS
     Dosage: 50 MG, QD
     Route: 048
  2. JANUVIA [Suspect]
     Dosage: 100 MG, QD
     Route: 048
  3. METFORMIN [Concomitant]
     Dosage: 1 G, BID

REACTIONS (1)
  - Loss of consciousness [Not Recovered/Not Resolved]
